FAERS Safety Report 9631721 (Version 1)
Quarter: 2013Q4

REPORT INFORMATION
  Report Type: Spontaneous
  Country: US (occurrence: US)
  Receive Date: 20131018
  Receipt Date: 20131018
  Transmission Date: 20140711
  Serious: Yes (Hospitalization, Other)
  Sender: FDA-Public Use
  Company Number: US-ELI_LILLY_AND_COMPANY-US201310002560

PATIENT
  Age: 61 Year
  Sex: Female

DRUGS (5)
  1. HUMALOG LISPRO [Suspect]
     Indication: TYPE 2 DIABETES MELLITUS
     Dosage: UNK UNK, BID
  2. GLIPIZIDE [Concomitant]
  3. DIOVAN [Concomitant]
  4. PROPRANOLOL [Concomitant]
  5. LANTUS [Concomitant]

REACTIONS (2)
  - Neck injury [Recovering/Resolving]
  - Fall [Recovered/Resolved]
